FAERS Safety Report 15021453 (Version 1)
Quarter: 2018Q2

REPORT INFORMATION
  Report Type: Spontaneous
  Country: US (occurrence: US)
  Receive Date: 20180618
  Receipt Date: 20180618
  Transmission Date: 20180711
  Serious: No
  Sender: FDA-Public Use
  Company Number: US-ELI_LILLY_AND_COMPANY-US201806006833

PATIENT
  Age: 71 Year
  Sex: Female

DRUGS (2)
  1. FORTEO [Suspect]
     Active Substance: TERIPARATIDE
     Dosage: 1 DF, OTHER (ONE DOSE EVERY THREE DAYS)
     Route: 065
  2. FORTEO [Suspect]
     Active Substance: TERIPARATIDE
     Indication: PRODUCT USED FOR UNKNOWN INDICATION
     Dosage: 20 UG, UNKNOWN (2 WEEK BREAK)
     Route: 058
     Dates: start: 201711

REACTIONS (3)
  - Dizziness [Unknown]
  - Nausea [Unknown]
  - Inappropriate schedule of drug administration [Unknown]
